FAERS Safety Report 6410811-9 (Version None)
Quarter: 2009Q4

REPORT INFORMATION
  Report Type: 
  Country: None (occurrence: None)
  Receive Date: 20091020
  Receipt Date: 20091020
  Transmission Date: 20100525
  Serious: Yes (Other)
  Sender: FDA-Public Use
  Company Number: None

PATIENT
  Age: 42 Year
  Sex: Female
  Weight: 70.3075 kg

DRUGS (1)
  1. NUVARING [Suspect]
     Indication: CONTRACEPTION
     Dosage: MONTHLY
     Dates: start: 20080701, end: 20090720

REACTIONS (2)
  - DRUG EXPOSURE DURING PREGNANCY [None]
  - UNWANTED PREGNANCY [None]
